FAERS Safety Report 12705243 (Version 1)
Quarter: 2016Q3

REPORT INFORMATION
  Report Type: Spontaneous
  Country: US (occurrence: None)
  Receive Date: 20160831
  Receipt Date: 20160831
  Transmission Date: 20161109
  Serious: No
  Sender: FDA-Public Use
  Company Number: None

PATIENT
  Age: 52 Year
  Sex: Female

DRUGS (1)
  1. LETAIRIS [Suspect]
     Active Substance: AMBRISENTAN
     Indication: PULMONARY ARTERIAL HYPERTENSION
     Route: 048
     Dates: start: 20160807

REACTIONS (7)
  - Oropharyngeal pain [None]
  - Dyspnoea [None]
  - Cough [None]
  - Hypokalaemia [None]
  - Fatigue [None]
  - Urinary tract infection [None]
  - Back pain [None]

NARRATIVE: CASE EVENT DATE: 20160823
